FAERS Safety Report 10053585 (Version 3)
Quarter: 2014Q2

REPORT INFORMATION
  Report Type: Report from Study
  Country: BE (occurrence: BE)
  Receive Date: 20140402
  Receipt Date: 20140410
  Transmission Date: 20141212
  Serious: Yes (Life-Threatening, Hospitalization, Other)
  Sender: FDA-Public Use
  Company Number: BE-ABBVIE-13P-013-1086793-00

PATIENT
  Age: 45 Year
  Sex: Male
  Weight: 115 kg

DRUGS (15)
  1. HUMIRA [Suspect]
     Indication: PSORIASIS
     Dosage: LOADING DOSE
     Dates: start: 20120116, end: 20120130
  2. HUMIRA [Suspect]
     Dates: start: 20120130, end: 20130311
  3. DOVOBET [Concomitant]
     Indication: PRODUCT USED FOR UNKNOWN INDICATION
     Dates: start: 20120803
  4. NEXIAM [Concomitant]
     Indication: GASTRIC DISORDER
     Route: 048
     Dates: start: 20060101
  5. NEXIAM [Concomitant]
     Indication: PROPHYLAXIS
  6. DOMINAL [Concomitant]
     Indication: SOMNOLENCE
     Route: 048
     Dates: start: 20060101
  7. LORMETAZEPAM [Concomitant]
     Indication: SOMNOLENCE
     Route: 048
     Dates: start: 20060101
  8. PANADOL [Concomitant]
     Indication: PRODUCT USED FOR UNKNOWN INDICATION
  9. TRAMIUM [Concomitant]
     Indication: PRODUCT USED FOR UNKNOWN INDICATION
  10. VENLAFAXINE [Concomitant]
     Indication: PRODUCT USED FOR UNKNOWN INDICATION
  11. LEDERTREXATE [Concomitant]
     Indication: PRODUCT USED FOR UNKNOWN INDICATION
     Dates: start: 20120826, end: 20130422
  12. LEDERTREXATE [Concomitant]
  13. PREPARED CREAM: ERYTHROMYCIN 2% + NYSTATINE 2.4X106UI [Concomitant]
     Indication: PRODUCT USED FOR UNKNOWN INDICATION
     Dates: start: 20120803
  14. CETOMACROGOL [Concomitant]
     Indication: PRODUCT USED FOR UNKNOWN INDICATION
  15. TACALCITOL [Concomitant]
     Indication: PRODUCT USED FOR UNKNOWN INDICATION
     Dates: start: 20130614

REACTIONS (4)
  - Respiratory disorder [Recovered/Resolved]
  - Prostate cancer [Recovered/Resolved]
  - Pulmonary embolism [Recovered/Resolved]
  - Lung infection [Recovered/Resolved]
